FAERS Safety Report 8426900-3 (Version None)
Quarter: 2012Q2

REPORT INFORMATION
  Report Type: 
  Country: None (occurrence: None)
  Receive Date: 20120611
  Receipt Date: 20120529
  Transmission Date: 20120825
  Serious: Yes (Disabling)
  Sender: FDA-Public Use
  Company Number: IL-PFIZER INC-2012121132

PATIENT
  Age: 27 Year
  Sex: Male

DRUGS (10)
  1. DOXORUBICIN HCL [Suspect]
     Dosage: 35 MG/M2, FOR 2 CYCLES OF ESCALATED BEACOPP
     Route: 065
  2. ETOPOSIDE [Suspect]
     Dosage: 600 MG/M2, FOR 2 CYCLES OF ESCALATED BEACOPP
     Route: 065
  3. CYCLOPHOSPHAMIDE [Concomitant]
     Indication: HODGKIN'S DISEASE
     Dosage: 650 MG/M2,FOR 4 CYCLES OF STANDARD BEACOPP
     Route: 065
  4. CYCLOPHOSPHAMIDE [Concomitant]
     Dosage: 1250 MG/M2, FOR 2 CYCLES OF ESCALATED BEACOPP
     Route: 065
  5. DOXORUBICIN HCL [Suspect]
     Indication: HODGKIN'S DISEASE
     Dosage: 25 MG/M2, FOR 4 CYCLES OF STANDARD BEACOPP
     Route: 065
  6. BLEOMYCIN [Concomitant]
     Indication: HODGKIN'S DISEASE
     Dosage: 10 MG/M2, FOR ALL 6 CYCLES OF BEACOPP (CUMULATIVE DOSE 60 MG/M2)
     Route: 065
  7. PROCARBAZINE [Concomitant]
     Indication: HODGKIN'S DISEASE
     Dosage: 700 MG/M2, FOR ALL 6 CYCLES OF BEACOPP
     Route: 065
  8. PREDNISONE [Concomitant]
     Indication: HODGKIN'S DISEASE
     Dosage: 280 MG/M2, FOR ALL 6 CYCLES OF BEACOPP
     Route: 065
  9. VINCRISTINE [Concomitant]
     Indication: HODGKIN'S DISEASE
     Dosage: 1.4 MG/M2, FOR ALL 6 CYCLES OF BEACOPP
     Route: 065
  10. ETOPOSIDE [Suspect]
     Indication: HODGKIN'S DISEASE
     Dosage: 300 MG/M2, FOR 4 CYCLES OF STANDARD BEACOPP
     Route: 065

REACTIONS (1)
  - RESPIRATORY DISORDER [None]
